FAERS Safety Report 14586272 (Version 1)
Quarter: 2018Q1

REPORT INFORMATION
  Report Type: Spontaneous
  Country: BR (occurrence: BR)
  Receive Date: 20180301
  Receipt Date: 20180301
  Transmission Date: 20180509
  Serious: Yes (Other)
  Sender: FDA-Public Use
  Company Number: BR-TORRENT-00004298

PATIENT
  Age: 49 Year
  Sex: Female
  Weight: 65 kg

DRUGS (3)
  1. AZULFIDINE [Concomitant]
     Active Substance: SULFASALAZINE
     Indication: FIBROMYALGIA
     Route: 048
     Dates: start: 20180216
  2. ALENDRONATE SODIUM. [Concomitant]
     Active Substance: ALENDRONATE SODIUM
     Indication: OSTEOPOROSIS
     Dosage: ONE CAPSULE WEEKLY
     Route: 048
     Dates: start: 20180207
  3. VENLIFT OD [Suspect]
     Active Substance: VENLAFAXINE HYDROCHLORIDE
     Indication: FIBROMYALGIA
     Dosage: ONE CAPSULE IN THE MORNING DAILY
     Route: 048
     Dates: start: 20180218

REACTIONS (5)
  - Urine output decreased [Not Recovered/Not Resolved]
  - Off label use [Unknown]
  - Urinary retention [Unknown]
  - Somnolence [Unknown]
  - Fatigue [Unknown]

NARRATIVE: CASE EVENT DATE: 20180218
